FAERS Safety Report 17338942 (Version 3)
Quarter: 2020Q1

REPORT INFORMATION
  Report Type: Report from Study
  Country: JP (occurrence: JP)
  Receive Date: 20200129
  Receipt Date: 20200228
  Transmission Date: 20200409
  Serious: Yes (Hospitalization, Other)
  Sender: FDA-Public Use
  Company Number: NVSJ2020JP000775

PATIENT
  Age: 3 Year
  Sex: Male
  Weight: 13.7 kg

DRUGS (16)
  1. ILARIS [Suspect]
     Active Substance: CANAKINUMAB
     Indication: STILL^S DISEASE
     Dosage: 60 MG
     Route: 058
     Dates: start: 20181102
  2. ILARIS [Suspect]
     Active Substance: CANAKINUMAB
     Dosage: 60 MG
     Route: 058
     Dates: start: 20190604
  3. COLCHICINE. [Concomitant]
     Active Substance: COLCHICINE
     Indication: STILL^S DISEASE
     Dosage: 0.2 MG
     Route: 048
     Dates: start: 20181031
  4. ILARIS [Suspect]
     Active Substance: CANAKINUMAB
     Dosage: 60 MG
     Route: 058
     Dates: start: 20190205
  5. ILARIS [Suspect]
     Active Substance: CANAKINUMAB
     Dosage: 60 MG
     Route: 058
     Dates: start: 20190828
  6. ILARIS [Suspect]
     Active Substance: CANAKINUMAB
     Dosage: 60 MG
     Route: 058
     Dates: start: 20181204
  7. ILARIS [Suspect]
     Active Substance: CANAKINUMAB
     Dosage: 60 MG
     Route: 058
     Dates: start: 20190507
  8. ILARIS [Suspect]
     Active Substance: CANAKINUMAB
     Dosage: 60 MG
     Route: 058
     Dates: start: 20190702
  9. PREDNISOLONE. [Concomitant]
     Active Substance: PREDNISOLONE
     Indication: STILL^S DISEASE
     Dosage: 2 MG
     Route: 048
     Dates: start: 20161112, end: 20190402
  10. ILARIS [Suspect]
     Active Substance: CANAKINUMAB
     Dosage: 60 MG
     Route: 058
     Dates: start: 20190305
  11. ILARIS [Suspect]
     Active Substance: CANAKINUMAB
     Dosage: 60 MG
     Route: 058
     Dates: start: 20190802
  12. ILARIS [Suspect]
     Active Substance: CANAKINUMAB
     Dosage: 60 MG
     Route: 058
     Dates: start: 20190104
  13. ILARIS [Suspect]
     Active Substance: CANAKINUMAB
     Dosage: 60 MG
     Route: 058
     Dates: start: 20190925
  14. ILARIS [Suspect]
     Active Substance: CANAKINUMAB
     Dosage: 60 MG
     Route: 058
     Dates: start: 20190403
  15. PROGRAF [Concomitant]
     Active Substance: TACROLIMUS
     Indication: STILL^S DISEASE
     Dosage: 1 MG
     Route: 048
     Dates: start: 20161129
  16. METHOTREXATE. [Concomitant]
     Active Substance: METHOTREXATE
     Indication: STILL^S DISEASE
     Dosage: 6 MG, QW
     Route: 048
     Dates: start: 20180312

REACTIONS (4)
  - Gastroenteritis [Recovered/Resolved]
  - Upper respiratory tract inflammation [Recovered/Resolved]
  - Tonsillitis [Recovered/Resolved]
  - Pneumonia [Recovered/Resolved]

NARRATIVE: CASE EVENT DATE: 20190515
